FAERS Safety Report 10368217 (Version 1)
Quarter: 2014Q3

REPORT INFORMATION
  Report Type: Spontaneous
  Country: US (occurrence: None)
  Receive Date: 20140806
  Receipt Date: 20140806
  Transmission Date: 20150326
  Serious: Yes (Life-Threatening)
  Sender: FDA-Public Use
  Company Number: None

PATIENT
  Age: 14 Year
  Sex: Female
  Weight: 54.89 kg

DRUGS (2)
  1. LEVETIRACETAM. [Suspect]
     Active Substance: LEVETIRACETAM
     Dosage: 3 TABS BID ORAL
     Route: 048
     Dates: start: 20130719, end: 20130730
  2. LEVETIRACETAM. [Suspect]
     Active Substance: LEVETIRACETAM
     Indication: EPILEPSY
     Dosage: 3 TABS BID ORAL
     Route: 048
     Dates: start: 20130709, end: 20130718

REACTIONS (5)
  - Muscle twitching [None]
  - Saliva altered [None]
  - Petit mal epilepsy [None]
  - Dyskinesia [None]
  - Product substitution issue [None]

NARRATIVE: CASE EVENT DATE: 20130718
